FAERS Safety Report 6397495-3 (Version None)
Quarter: 2009Q4

REPORT INFORMATION
  Report Type: 
  Country: None (occurrence: None)
  Receive Date: 20091001
  Receipt Date: 20090918
  Transmission Date: 20100525
  Serious: Yes (Death, Hospitalization)
  Sender: FDA-Public Use
  Company Number: 20090918CINRY1142

PATIENT
  Age: 57 Year
  Sex: Female

DRUGS (7)
  1. CINRYZE [Suspect]
     Indication: HEREDITARY ANGIOEDEMA
     Dosage: 1000 UNIT, 2 IN 1 WK, INTRAVENOUS, 1500 UNIT, 2 IN 1 WK, INTRAVENOUS
     Route: 042
     Dates: start: 20090612, end: 20090901
  2. CINRYZE [Suspect]
     Indication: PROPHYLAXIS
     Dosage: 1000 UNIT, 2 IN 1 WK, INTRAVENOUS, 1500 UNIT, 2 IN 1 WK, INTRAVENOUS
     Route: 042
     Dates: start: 20090612, end: 20090901
  3. CINRYZE [Suspect]
     Indication: HEREDITARY ANGIOEDEMA
     Dosage: 1000 UNIT, 2 IN 1 WK, INTRAVENOUS, 1500 UNIT, 2 IN 1 WK, INTRAVENOUS
     Route: 042
     Dates: start: 20090902
  4. CINRYZE [Suspect]
     Indication: PROPHYLAXIS
     Dosage: 1000 UNIT, 2 IN 1 WK, INTRAVENOUS, 1500 UNIT, 2 IN 1 WK, INTRAVENOUS
     Route: 042
     Dates: start: 20090902
  5. PROZAC [Concomitant]
  6. DILTIAZEM [Concomitant]
  7. WARFARIN SODIUM [Concomitant]

REACTIONS (7)
  - ABDOMINAL PAIN [None]
  - CARDIAC DISORDER [None]
  - HAEMODYNAMIC INSTABILITY [None]
  - HEREDITARY ANGIOEDEMA [None]
  - HYPOTENSION [None]
  - LACTIC ACIDOSIS [None]
  - RENAL FAILURE ACUTE [None]
